FAERS Safety Report 21436510 (Version 2)
Quarter: 2022Q4

REPORT INFORMATION
  Report Type: Spontaneous
  Country: US (occurrence: US)
  Receive Date: 20221010
  Receipt Date: 20221028
  Transmission Date: 20230113
  Serious: Yes (Hospitalization)
  Sender: FDA-Public Use
  Company Number: US-BAYER-2022A139484

PATIENT
  Age: 21 Month
  Sex: Male

DRUGS (2)
  1. KOVALTRY [Suspect]
     Active Substance: ANTIHEMOPHILIC FACTOR, HUMAN RECOMBINANT
     Indication: Factor VIII deficiency
     Dosage: 500 IU, PRN
     Route: 042
     Dates: start: 202110
  2. KOVALTRY [Suspect]
     Active Substance: ANTIHEMOPHILIC FACTOR, HUMAN RECOMBINANT
     Indication: Factor VIII deficiency
     Dosage: 3 DF, FOR THE MOUTH AND NOSE BLEED TREATMENT
     Route: 042

REACTIONS (2)
  - Mouth haemorrhage [None]
  - Epistaxis [None]

NARRATIVE: CASE EVENT DATE: 20220826
